FAERS Safety Report 5421031-9 (Version None)
Quarter: 2007Q3

REPORT INFORMATION
  Report Type: 
  Country: None (occurrence: None)
  Receive Date: 20070821
  Receipt Date: 20070816
  Transmission Date: 20080115
  Serious: Yes (Hospitalization)
  Sender: FDA-Public Use
  Company Number: A0666080A

PATIENT
  Age: 72 Year
  Sex: Male

DRUGS (11)
  1. COREG CR [Suspect]
     Indication: CARDIAC FAILURE CONGESTIVE
     Dosage: 80MG PER DAY
     Route: 048
     Dates: start: 20070601
  2. GLYBURIDE AND METFORMIN HCL [Concomitant]
  3. LISINOPRIL [Concomitant]
  4. WARFARIN [Concomitant]
  5. FUROSEMIDE [Concomitant]
  6. ASPIRIN [Concomitant]
  7. DIGITEK [Concomitant]
  8. SPIRONOLACTONE [Concomitant]
  9. TEMAZEPAM [Concomitant]
  10. LIPITOR [Concomitant]
  11. ACIPHEX [Concomitant]

REACTIONS (7)
  - ASTHENIA [None]
  - BALANCE DISORDER [None]
  - DIZZINESS [None]
  - DYSARTHRIA [None]
  - HYPOTENSION [None]
  - OVERDOSE [None]
  - VISUAL ACUITY REDUCED [None]
